FAERS Safety Report 25171554 (Version 1)
Quarter: 2025Q2

REPORT INFORMATION
  Report Type: Spontaneous
  Country: HR (occurrence: HR)
  Receive Date: 20250408
  Receipt Date: 20250408
  Transmission Date: 20250717
  Serious: Yes (Hospitalization, Other)
  Sender: ELI LILLY AND CO
  Company Number: HR-Merck Healthcare KGaA-2025015880

PATIENT
  Age: 60 Year
  Sex: Male

DRUGS (9)
  1. ERBITUX [Suspect]
     Active Substance: CETUXIMAB
     Indication: Adenocarcinoma of colon
     Route: 065
     Dates: start: 201808
  2. ERBITUX [Suspect]
     Active Substance: CETUXIMAB
     Route: 065
     Dates: start: 202005
  3. OXALIPLATIN [Concomitant]
     Active Substance: OXALIPLATIN
     Indication: Adenocarcinoma of colon
     Dates: start: 201808
  4. OXALIPLATIN [Concomitant]
     Active Substance: OXALIPLATIN
     Dates: start: 202005
  5. LEUCOVORIN [Concomitant]
     Active Substance: LEUCOVORIN\LEUCOVORIN CALCIUM
     Indication: Adenocarcinoma of colon
     Dates: start: 201808
  6. LEUCOVORIN [Concomitant]
     Active Substance: LEUCOVORIN\LEUCOVORIN CALCIUM
     Dates: start: 202005
  7. FLUOROURACIL [Concomitant]
     Active Substance: FLUOROURACIL
     Indication: Adenocarcinoma of colon
     Dates: start: 201808
  8. FLUOROURACIL [Concomitant]
     Active Substance: FLUOROURACIL
     Dates: start: 202005
  9. RAMIPRIL [Concomitant]
     Active Substance: RAMIPRIL
     Indication: Product used for unknown indication

REACTIONS (2)
  - Hepatic haematoma [Recovered/Resolved]
  - Malignant neoplasm progression [Unknown]

NARRATIVE: CASE EVENT DATE: 20210101
